FAERS Safety Report 10188676 (Version 1)
Quarter: 2014Q2

REPORT INFORMATION
  Report Type: Spontaneous
  Country: US (occurrence: US)
  Receive Date: 20140522
  Receipt Date: 20140522
  Transmission Date: 20141212
  Serious: No
  Sender: FDA-Public Use
  Company Number: US-SA-2014SA035491

PATIENT
  Age: 62 Year
  Sex: Female

DRUGS (3)
  1. SOLOSTAR [Suspect]
     Indication: DEVICE THERAPY
     Dates: start: 2012
  2. LANTUS SOLOSTAR [Suspect]
     Indication: TYPE 2 DIABETES MELLITUS
     Dosage: THERAPY START DATE: ALMOST 2 YEARS AGO DOSE:40 UNIT(S)
     Route: 065
     Dates: start: 2012
  3. ANTI-ASTHMATICS [Concomitant]
     Indication: ASTHMA

REACTIONS (1)
  - Nervousness [Unknown]
